FAERS Safety Report 9634105 (Version 1)
Quarter: 2013Q4

REPORT INFORMATION
  Report Type: Spontaneous
  Country: GB (occurrence: None)
  Receive Date: 20131017
  Receipt Date: 20131017
  Transmission Date: 20140711
  Serious: Yes (Other)
  Sender: FDA-Public Use
  Company Number: SYM-2013-11413

PATIENT
  Sex: Female

DRUGS (2)
  1. FLUOROURACIL [Suspect]
     Indication: VULVAL CANCER
  2. CISPLATIN (CISPLATIN) (CISPLATIN) [Suspect]
     Indication: VULVAL CANCER

REACTIONS (1)
  - Haematotoxicity [None]
